FAERS Safety Report 6136879-5 (Version None)
Quarter: 2009Q1

REPORT INFORMATION
  Report Type: 
  Country: None (occurrence: None)
  Receive Date: 20090326
  Receipt Date: 20090326
  Transmission Date: 20090719
  Serious: No
  Sender: FDA-Public Use
  Company Number: None

PATIENT
  Sex: Female
  Weight: 69.09 kg

DRUGS (9)
  1. LISINOPRIL [Suspect]
     Dosage: 5MG TABLET 5 MG QD ORAL
     Route: 048
     Dates: start: 20080717, end: 20090326
  2. ADVAIR DISKUS (FLUTICASONE PROPIONATE/SALMETEROL) [Concomitant]
  3. ALBUTEROL [Concomitant]
  4. ERGOCALCIFEROL [Concomitant]
  5. FLONASE [Concomitant]
  6. FLUCONAZOLE [Concomitant]
  7. IBUPROFEN [Concomitant]
  8. OMEPRAZOLE [Concomitant]
  9. SIMVASTATIN [Concomitant]

REACTIONS (1)
  - CONSTIPATION [None]
